FAERS Safety Report 6121181-8 (Version None)
Quarter: 2009Q1

REPORT INFORMATION
  Report Type: 
  Country: None (occurrence: None)
  Receive Date: 20090317
  Receipt Date: 20090306
  Transmission Date: 20090719
  Serious: Yes (Hospitalization)
  Sender: FDA-Public Use
  Company Number: FR-BAXTER-2009BH003839

PATIENT
  Age: 50 Year
  Sex: Female
  Weight: 64 kg

DRUGS (10)
  1. ENDOXAN BAXTER [Suspect]
     Indication: VASCULITIS CEREBRAL
     Route: 042
     Dates: start: 20090305, end: 20090305
  2. ONDANSETRON HCL [Suspect]
     Indication: VASCULITIS CEREBRAL
     Route: 042
     Dates: start: 20090305, end: 20090305
  3. UROMITEXAN BAXTER [Suspect]
     Indication: VASCULITIS CEREBRAL
     Route: 042
     Dates: start: 20090305, end: 20090305
  4. UROMITEXAN BAXTER [Suspect]
     Route: 048
     Dates: start: 20090305, end: 20090305
  5. GLUCIDION [Suspect]
     Indication: VASCULITIS CEREBRAL
     Route: 042
     Dates: start: 20090305, end: 20090305
  6. CORTANCYL [Concomitant]
  7. DIFFU K [Concomitant]
  8. LANSOPRAZOLE [Concomitant]
  9. COLECALCIFEROL [Concomitant]
  10. BROMAZEPAM [Concomitant]
     Indication: ANXIETY
     Route: 048

REACTIONS (6)
  - ASTHENIA [None]
  - HEADACHE [None]
  - HYPERHIDROSIS [None]
  - NAUSEA [None]
  - VERTIGO [None]
  - VOMITING [None]
